FAERS Safety Report 9215563 (Version 1)
Quarter: 2013Q2

REPORT INFORMATION
  Report Type: Spontaneous
  Country: IT (occurrence: IT)
  Receive Date: 20130407
  Receipt Date: 20130407
  Transmission Date: 20140414
  Serious: Yes (Hospitalization)
  Sender: FDA-Public Use
  Company Number: IT-BRISTOL-MYERS SQUIBB COMPANY-17426693

PATIENT
  Age: 67 Year
  Sex: Male

DRUGS (5)
  1. COUMADIN TABS 5 MG [Suspect]
     Indication: ATRIAL FIBRILLATION
     Dosage: INTERRUPT ON 25-FEB-2013
     Route: 048
     Dates: start: 20101105
  2. LEVOXACIN [Suspect]
     Dosage: LEVOXACIN ^500 MG TABLETS
     Route: 048
     Dates: start: 20130215, end: 20130219
  3. CARDIOASPIRIN [Concomitant]
     Dosage: 1 TAB
  4. FUROSEMIDE [Concomitant]
     Dosage: 2 TABS
  5. PANTOPRAZOLE [Concomitant]
     Dosage: 1 TAB

REACTIONS (3)
  - Asthenia [Unknown]
  - Anaemia [Unknown]
  - International normalised ratio increased [Recovered/Resolved]
